FAERS Safety Report 17958076 (Version 2)
Quarter: 2020Q3

REPORT INFORMATION
  Report Type: Report from Study
  Country: DE (occurrence: DE)
  Receive Date: 20200629
  Receipt Date: 20200703
  Transmission Date: 20201103
  Serious: Yes (Other)
  Sender: FDA-Public Use
  Company Number: NVSC2020DE177464

PATIENT
  Sex: Female
  Weight: 80 kg

DRUGS (7)
  1. METFORMIN [Concomitant]
     Active Substance: METFORMIN HYDROCHLORIDE
     Indication: PRODUCT USED FOR UNKNOWN INDICATION
     Dosage: 500 MG
     Route: 048
     Dates: start: 2012
  2. FUMADERM [Suspect]
     Active Substance: CALCIUM MONOETHYLFUMARATE\DIMETHYL FUMARATE\MAGNESIUM MONOETHYLFUMARATE\ZINC MONOETHYLFUMARATE
     Indication: PSORIASIS
     Dosage: 1 DF, UNKNOWN
     Route: 065
     Dates: start: 20090730, end: 20091126
  3. CYCLOSPORINE. [Suspect]
     Active Substance: CYCLOSPORINE
     Indication: PSORIASIS
     Dosage: 200 MG, UNKNOWN
     Route: 065
     Dates: start: 20140306, end: 20140921
  4. COSENTYX [Suspect]
     Active Substance: SECUKINUMAB
     Indication: PSORIASIS
     Dosage: 300 MG
     Route: 065
     Dates: start: 20170308, end: 20181208
  5. METHOTREXAT ^SANDOZ^ [Suspect]
     Active Substance: METHOTREXATE SODIUM
     Indication: PSORIASIS
     Dosage: 10 MG
     Route: 065
     Dates: start: 20100408, end: 20140306
  6. OTEZLA [Suspect]
     Active Substance: APREMILAST
     Indication: PSORIASIS
     Dosage: UNK
     Route: 065
     Dates: start: 20161116, end: 20170216
  7. CYCLOSPORINE. [Suspect]
     Active Substance: CYCLOSPORINE
     Dosage: 100 MG, UNKNOWN
     Route: 065
     Dates: start: 20140922, end: 20150917

REACTIONS (9)
  - Lung neoplasm malignant [Not Recovered/Not Resolved]
  - Pancreatic cyst [Unknown]
  - Second primary malignancy [Unknown]
  - Tendonitis [Unknown]
  - Rectal cancer [Not Recovered/Not Resolved]
  - Osteochondrosis [Unknown]
  - Metastases to liver [Unknown]
  - Depression [Unknown]
  - Hepatic cyst [Unknown]

NARRATIVE: CASE EVENT DATE: 20190403
